FAERS Safety Report 12143007 (Version 2)
Quarter: 2016Q2

REPORT INFORMATION
  Report Type: Report from Study
  Country: JP (occurrence: JP)
  Receive Date: 20160303
  Receipt Date: 20160519
  Transmission Date: 20160815
  Serious: No
  Sender: FDA-Public Use
  Company Number: JP-FRI-1000083063

PATIENT
  Age: 53 Year
  Sex: Male
  Weight: 81.3 kg

DRUGS (16)
  1. TSUMURA [Concomitant]
     Indication: CONSTIPATION
     Route: 048
  2. MYDRIN-P [Concomitant]
     Active Substance: PHENYLEPHRINE HYDROCHLORIDE\TROPICAMIDE
     Indication: MYDRIASIS
     Dosage: ADEQUATE DOSE
     Route: 031
     Dates: start: 20150317, end: 20150317
  3. UREA. [Concomitant]
     Active Substance: UREA
     Indication: HYPERKERATOSIS
     Route: 062
     Dates: end: 20150204
  4. CEFPODOXIME PROXETIL. [Concomitant]
     Active Substance: CEFPODOXIME PROXETIL
     Indication: CELLULITIS
     Route: 048
     Dates: start: 20150214, end: 20150220
  5. KETOPROFEN. [Concomitant]
     Active Substance: KETOPROFEN
     Indication: LIGAMENT SPRAIN
     Route: 061
     Dates: start: 20150421, end: 20150430
  6. VILDAGLIPTIN [Concomitant]
     Active Substance: VILDAGLIPTIN
     Indication: DIABETES MELLITUS
     Route: 048
  7. LORAZEPAM. [Concomitant]
     Active Substance: LORAZEPAM
     Indication: RESTLESSNESS
     Route: 048
     Dates: end: 20150210
  8. LORAZEPAM. [Concomitant]
     Active Substance: LORAZEPAM
     Indication: SCHIZOPHRENIA
     Route: 048
     Dates: start: 20150211
  9. ESZOPICLONE. [Concomitant]
     Active Substance: ESZOPICLONE
     Indication: INSOMNIA
     Route: 048
  10. CARIPRAZINE [Suspect]
     Active Substance: CARIPRAZINE
     Indication: SCHIZOPHRENIA
     Dates: start: 20150128, end: 20150427
  11. LOXAPROFEN SODIUM HYDRATE [Concomitant]
     Indication: STOMATITIS
     Route: 048
     Dates: start: 20150305, end: 20150314
  12. SENNA [Concomitant]
     Active Substance: SENNA LEAF\SENNOSIDES\SENNOSIDES A AND B
     Indication: CONSTIPATION
     Route: 048
  13. LORAZEPAM. [Concomitant]
     Active Substance: LORAZEPAM
     Route: 048
  14. ACETAMINOPHEN. [Concomitant]
     Active Substance: ACETAMINOPHEN
     Indication: PYREXIA
     Route: 048
     Dates: start: 20150128, end: 20150128
  15. NEUROVITAN [Concomitant]
     Active Substance: VITAMINS
     Indication: STOMATITIS
     Route: 048
     Dates: start: 20150305, end: 20150314
  16. SENNOSIDE [Concomitant]
     Active Substance: SENNOSIDES
     Indication: CONSTIPATION
     Route: 048

REACTIONS (1)
  - Cataract [Recovering/Resolving]

NARRATIVE: CASE EVENT DATE: 20150424
